FAERS Safety Report 9772741 (Version 1)
Quarter: 2013Q4

REPORT INFORMATION
  Report Type: Spontaneous
  Country: US (occurrence: None)
  Receive Date: 20131218
  Receipt Date: 20131218
  Transmission Date: 20140711
  Serious: Yes (Hospitalization)
  Sender: FDA-Public Use
  Company Number: None

PATIENT
  Age: 67 None
  Sex: Male

DRUGS (2)
  1. CAPECITABINE [Suspect]
     Indication: OESOPHAGEAL ADENOCARCINOMA
     Route: 048
     Dates: start: 20130827, end: 20130909
  2. OXALIPLATIN [Suspect]
     Indication: OESOPHAGEAL ADENOCARCINOMA
     Route: 042
     Dates: start: 20130827, end: 20130827

REACTIONS (6)
  - Febrile neutropenia [None]
  - Diarrhoea [None]
  - Tachycardia [None]
  - Hypotension [None]
  - Electrolyte imbalance [None]
  - Hypokalaemia [None]
